FAERS Safety Report 14742419 (Version 6)
Quarter: 2019Q2

REPORT INFORMATION
  Report Type: Report from Study
  Country: None (occurrence: TR)
  Receive Date: 20180410
  Receipt Date: 20190412
  Transmission Date: 20190711
  Serious: Yes (Hospitalization)
  Sender: FDA-Public Use
  Company Number: TR-ABBVIE-18K-161-2314245-00

PATIENT
  Age: 52 Year
  Sex: Female
  Weight: 55 kg

DRUGS (13)
  1. REXAPIN [Concomitant]
     Active Substance: OLANZAPINE
     Indication: HALLUCINATION
     Dates: end: 20180405
  2. DUODOPA [Suspect]
     Active Substance: CARBIDOPA\LEVODOPA
     Dosage: MORNING DOSE(ML): 7.50?CONTINUOUS DOSE(ML):3.50?EXTRA DOSE(ML): 2.00
     Route: 050
     Dates: start: 20180410
  3. BUSCOPAN [Concomitant]
     Active Substance: BUTYLSCOPOLAMINE BROMIDE
     Indication: PAIN
     Dates: start: 20180405, end: 20180409
  4. SEROQUEL [Concomitant]
     Active Substance: QUETIAPINE FUMARATE
     Indication: PRODUCT USED FOR UNKNOWN INDICATION
  5. BETAKSIM [Concomitant]
     Indication: PROPHYLAXIS
     Dates: start: 20180403, end: 20180406
  6. ISOTONIC SOLUTIONS [Concomitant]
     Indication: DEHYDRATION
     Dates: end: 20180405
  7. PAROL [Concomitant]
     Active Substance: ACETAMINOPHEN
     Indication: PYREXIA
     Dates: start: 20180405, end: 20180409
  8. ATIVAN [Concomitant]
     Active Substance: LORAZEPAM
     Indication: DEPRESSION
     Dates: end: 20180405
  9. DUODOPA [Suspect]
     Active Substance: CARBIDOPA\LEVODOPA
     Indication: PARKINSON^S DISEASE
     Dosage: MORNING DOSE(ML):7.50?CONTINUOUS DOSE(ML): 3.50?EXTRA DOSE(ML): 2.50
     Route: 050
     Dates: start: 20180327, end: 20180405
  10. DUODOPA [Suspect]
     Active Substance: CARBIDOPA\LEVODOPA
     Dosage: MORNING DOSE(ML): 7.50?CONTINUOUS DOSE(ML):3.00?EXTRA DOSE(ML): 2.00
     Route: 050
     Dates: start: 20180405, end: 20180406
  11. SULINEX [Concomitant]
     Indication: ANXIETY
     Route: 048
     Dates: start: 20180406
  12. SULINEX [Concomitant]
     Indication: DEPRESSION
     Route: 048
     Dates: end: 20180327
  13. ATIVAN [Concomitant]
     Active Substance: LORAZEPAM
     Indication: ANXIETY

REACTIONS (5)
  - Stoma site discharge [Recovered/Resolved]
  - Pyrexia [Recovered/Resolved]
  - Dehydration [Recovered/Resolved]
  - Abdominal pain [Recovered/Resolved]
  - Hallucination [Recovered/Resolved]

NARRATIVE: CASE EVENT DATE: 20180405
